FAERS Safety Report 8402534-1 (Version None)
Quarter: 2012Q2

REPORT INFORMATION
  Report Type: 
  Country: None (occurrence: None)
  Receive Date: 20120601
  Receipt Date: 20120525
  Transmission Date: 20120825
  Serious: Yes (Other)
  Sender: FDA-Public Use
  Company Number: PHHY2012BR045686

PATIENT
  Sex: Male

DRUGS (1)
  1. ONBREZ [Suspect]
     Indication: OBSTRUCTIVE AIRWAYS DISORDER

REACTIONS (2)
  - OBSTRUCTIVE AIRWAYS DISORDER [None]
  - VERTIGO [None]
